FAERS Safety Report 7474964-6 (Version None)
Quarter: 2011Q2

REPORT INFORMATION
  Report Type: 
  Country: None (occurrence: None)
  Receive Date: 20110509
  Receipt Date: 20110509
  Transmission Date: 20111010
  Serious: Yes (Other)
  Sender: FDA-Public Use
  Company Number: None

PATIENT
  Age: 49 Year
  Sex: Female
  Weight: 92 kg

DRUGS (1)
  1. ENTEREG [Suspect]
     Indication: SURGERY
     Dosage: 12MG BID PO
     Route: 048
     Dates: start: 20110505, end: 20110506

REACTIONS (2)
  - NAUSEA [None]
  - VOMITING [None]
